FAERS Safety Report 8791915 (Version 1)
Quarter: 2012Q4

REPORT INFORMATION
  Report Type: 
  Country: US (occurrence: US)
  Receive Date: 20120918
  Receipt Date: 20120918
  Transmission Date: 20130627
  Serious: No
  Sender: FDA-Public Use
  Company Number: US-B.I. PHARMACEUTICALS,INC./RIDGEFIELD-2012-BP-22520BP

PATIENT
  Sex: Female
  Weight: 63 kg

DRUGS (7)
  1. SPIRIVA [Suspect]
     Indication: CHRONIC OBSTRUCTIVE PULMONARY DISEASE
     Dosage: 18 mcg
     Route: 055
     Dates: start: 2009
  2. ZOLOFT [Concomitant]
     Indication: DEPRESSION
     Dosage: 50 mg
     Route: 048
     Dates: end: 201207
  3. TOPROL [Concomitant]
     Indication: HYPERTENSION
     Dosage: 50 mg
     Route: 048
  4. SINGULAIR [Concomitant]
     Indication: HYPERSENSITIVITY
     Dosage: 10 mg
     Route: 048
  5. VICODIN [Concomitant]
     Indication: PAIN
     Route: 048
  6. SYMBICORT [Concomitant]
     Indication: DYSPNOEA
     Route: 055
  7. ESTRACE [Concomitant]
     Indication: MENOPAUSE
     Dosage: 2 mg
     Route: 048

REACTIONS (7)
  - Systemic lupus erythematosus [Not Recovered/Not Resolved]
  - Insomnia [Not Recovered/Not Resolved]
  - Hypertension [Not Recovered/Not Resolved]
  - Blood cholesterol increased [Not Recovered/Not Resolved]
  - Product quality issue [Recovered/Resolved]
  - Product quality issue [Recovered/Resolved]
  - Product quality issue [Recovered/Resolved]
